FAERS Safety Report 8979651 (Version 2)
Quarter: 2013Q1

REPORT INFORMATION
  Report Type: Spontaneous
  Country: JP (occurrence: JP)
  Receive Date: 20121221
  Receipt Date: 20130103
  Transmission Date: 20140127
  Serious: Yes (Other)
  Sender: FDA-Public Use
  Company Number: JP-PFIZER INC-2012323456

PATIENT
  Age: 76 Year
  Sex: Female
  Weight: 49.5 kg

DRUGS (2)
  1. CISPLATIN [Suspect]
     Indication: CERVIX CARCINOMA
     Dosage: 5MG, DAILY, CONTINUOUS 7-DAY SCHEDULE, EVERY 28 DAYS
     Route: 013
  2. FLUOROURACIL [Suspect]
     Indication: CERVIX CARCINOMA
     Dosage: 250MG, DAILY, CONTINUOUS 7-DAY SCHEDULE, EVERY 28 DAYS
     Route: 013

REACTIONS (4)
  - Aortitis [Recovered/Resolved]
  - Vasculitis [Recovering/Resolving]
  - Back pain [Unknown]
  - Pyrexia [Unknown]
